FAERS Safety Report 25923123 (Version 1)
Quarter: 2025Q4

REPORT INFORMATION
  Report Type: Spontaneous
  Country: CA (occurrence: CA)
  Receive Date: 20251015
  Receipt Date: 20251015
  Transmission Date: 20260119
  Serious: Yes (Hospitalization, Other)
  Sender: NORDIC PHARMA
  Company Number: CA-NORDICGR-064309

PATIENT
  Age: 65 Year
  Sex: Male
  Weight: 108 kg

DRUGS (4)
  1. METHOTREXATE SODIUM [Suspect]
     Active Substance: METHOTREXATE SODIUM
     Indication: Colitis ulcerative
     Dosage: DOSAGE: 1 DOSAGE FORMS
     Route: 065
  2. SEMAGLUTIDE [Concomitant]
     Active Substance: SEMAGLUTIDE
     Indication: Product used for unknown indication
     Route: 065
  3. INFLIXIMAB [Concomitant]
     Active Substance: INFLIXIMAB
     Indication: Colitis ulcerative
     Route: 042
  4. REMICADE [Concomitant]
     Active Substance: INFLIXIMAB
     Indication: Product used for unknown indication
     Dosage: TIME INTERVAL: 1 CYCLICAL
     Route: 065

REACTIONS (9)
  - Colon cancer [Not Recovered/Not Resolved]
  - Bradycardia [Not Recovered/Not Resolved]
  - Product use in unapproved indication [Unknown]
  - Eye disorder [Not Recovered/Not Resolved]
  - Arthritis [Not Recovered/Not Resolved]
  - Frustration tolerance decreased [Not Recovered/Not Resolved]
  - COVID-19 [Unknown]
  - Adrenal gland cancer [Not Recovered/Not Resolved]
  - Anxiety [Not Recovered/Not Resolved]
